FAERS Safety Report 18847666 (Version 2)
Quarter: 2021Q1

REPORT INFORMATION
  Report Type: Spontaneous
  Country: GB (occurrence: GB)
  Receive Date: 20210204
  Receipt Date: 20210216
  Transmission Date: 20210419
  Serious: No
  Sender: FDA-Public Use
  Company Number: GB-NOVOPROD-783804

PATIENT
  Age: 73 Year
  Sex: Female

DRUGS (5)
  1. VAGIFEM [Suspect]
     Active Substance: ESTRADIOL
     Indication: PRODUCT USED FOR UNKNOWN INDICATION
     Dosage: TWICE WEEKLY
     Route: 067
     Dates: start: 2016
  2. BACLOFEN. [Concomitant]
     Active Substance: BACLOFEN
  3. BETNOVATE [Concomitant]
     Active Substance: BETAMETHASONE
     Dosage: OINTMENT ON REPEAT PRESCRIPTION
     Route: 061
  4. ATORVASTATIN [Concomitant]
     Active Substance: ATORVASTATIN
     Dosage: UNK
     Route: 065
  5. AMITRIPTYLINE [Concomitant]
     Active Substance: AMITRIPTYLINE
     Dosage: UNK
     Route: 065

REACTIONS (2)
  - Vulval ulceration [Unknown]
  - Rash [Unknown]
